FAERS Safety Report 13127993 (Version 1)
Quarter: 2017Q1

REPORT INFORMATION
  Report Type: Spontaneous
  Country: US (occurrence: US)
  Receive Date: 20170118
  Receipt Date: 20170118
  Transmission Date: 20170428
  Serious: Yes (Death)
  Sender: FDA-Public Use
  Company Number: US-MYLANLABS-2017M1001171

PATIENT

DRUGS (1)
  1. LEVOTHYROXINE. [Suspect]
     Active Substance: LEVOTHYROXINE
     Indication: THYROIDECTOMY
     Dosage: UNK

REACTIONS (4)
  - Death [Fatal]
  - Urticaria [Not Recovered/Not Resolved]
  - Rash pruritic [Fatal]
  - Reaction to drug excipients [Not Recovered/Not Resolved]
